FAERS Safety Report 4772353-6 (Version None)
Quarter: 2005Q3

REPORT INFORMATION
  Report Type: 
  Country: None (occurrence: None)
  Receive Date: 20050919
  Receipt Date: 20040902
  Transmission Date: 20060218
  Serious: No
  Sender: FDA-Public Use
  Company Number: US-BRISTOL-MYERS SQUIBB COMPANY-12691259

PATIENT
  Age: 67 Year
  Sex: Female
  Weight: 70 kg

DRUGS (7)
  1. KENALOG-40 [Suspect]
     Indication: NASAL POLYPS
     Dates: end: 20040101
  2. KENALOG-40 [Suspect]
     Indication: ASTHMA
     Dates: end: 20040101
  3. NOVADEX [Concomitant]
  4. THIAMINE HCL [Concomitant]
  5. VITAMIN [Concomitant]
  6. ADVAIR DISKUS 100/50 [Concomitant]
     Dosage: DOSAGE: 50/500
  7. BELLADONNA [Concomitant]

REACTIONS (1)
  - POSTMENOPAUSAL HAEMORRHAGE [None]
